FAERS Safety Report 4302462-7 (Version None)
Quarter: 2004Q1

REPORT INFORMATION
  Report Type: 
  Country: None (occurrence: None)
  Receive Date: 20040218
  Receipt Date: 20031219
  Transmission Date: 20041129
  Serious: Yes (Other)
  Sender: FDA-Public Use
  Company Number: 200317913US

PATIENT
  Age: 52 Year
  Sex: Female
  Weight: 58 kg

DRUGS (9)
  1. LANTUS [Suspect]
     Indication: DIABETES MELLITUS INSULIN-DEPENDENT
     Dosage: 15 U HS INJ
     Route: 042
     Dates: start: 20011101
  2. LANTUS [Suspect]
     Indication: DIABETES MELLITUS INSULIN-DEPENDENT
     Dosage: 16 U QAM INJ
     Route: 042
  3. LANTUS [Suspect]
     Indication: DIABETES MELLITUS INSULIN-DEPENDENT
     Dosage: 20 U QAM INJ
     Route: 042
  4. LANTUS [Suspect]
     Indication: DIABETES MELLITUS INSULIN-DEPENDENT
     Dosage: 20 U QAM INJ
     Route: 042
     Dates: start: 20030903
  5. HUMALOG [Concomitant]
  6. INSULIN PORCINE (REGULAR INSULIN) [Concomitant]
  7. INSULIN PORCINE (REGULAR INSULIN [Concomitant]
  8. PRINIVIL [Concomitant]
  9. PROZAC [Concomitant]

REACTIONS (3)
  - BLOOD GLUCOSE DECREASED [None]
  - BLOOD GLUCOSE INCREASED [None]
  - HYPERGLYCAEMIA [None]
